FAERS Safety Report 10622972 (Version 1)
Quarter: 2014Q4

REPORT INFORMATION
  Report Type: Spontaneous
  Country: IN (occurrence: IN)
  Receive Date: 20141203
  Receipt Date: 20141203
  Transmission Date: 20150529
  Serious: Yes (Death, Other)
  Sender: FDA-Public Use
  Company Number: IN-ASTRAZENECA-2014SE90731

PATIENT
  Sex: Male

DRUGS (2)
  1. XYLOCAINE [Suspect]
     Active Substance: LIDOCAINE HYDROCHLORIDE
     Indication: EYE LASER SURGERY
     Dosage: ONCE/SINGLE ADMINISTRATION
     Route: 047
     Dates: start: 20141121, end: 20141121
  2. XYLOCAINE [Suspect]
     Active Substance: LIDOCAINE HYDROCHLORIDE
     Indication: EYE LASER SURGERY
     Dosage: ONCE/SINGLE ADMINISTRATION
     Route: 065
     Dates: start: 20141121, end: 20141121

REACTIONS (2)
  - Medication error [Fatal]
  - Seizure [Unknown]

NARRATIVE: CASE EVENT DATE: 20141121
